APPROVED DRUG PRODUCT: ABILIFY MAINTENA KIT
Active Ingredient: ARIPIPRAZOLE
Strength: 300MG
Dosage Form/Route: FOR SUSPENSION, EXTENDED RELEASE;INTRAMUSCULAR
Application: N202971 | Product #003
Applicant: OTSUKA PHARMACEUTICAL CO LTD
Approved: Sep 29, 2014 | RLD: Yes | RS: No | Type: RX

PATENTS:
Patent 10525057 | Expires: Mar 8, 2034
Patent 10525057 | Expires: Mar 8, 2034
Patent 10525057 | Expires: Mar 8, 2034
Patent 11344547 | Expires: Sep 24, 2033
Patent 11400087 | Expires: Sep 24, 2033
Patent 11400087 | Expires: Sep 24, 2033
Patent 11400087 | Expires: Sep 24, 2033
Patent 11344547 | Expires: Sep 24, 2033
Patent 11344547 | Expires: Sep 24, 2033
Patent 10980803 | Expires: Sep 24, 2033
Patent 10980803 | Expires: Sep 24, 2033
Patent 11154553 | Expires: Sep 24, 2033
Patent 11154553 | Expires: Sep 24, 2033
Patent 11154553 | Expires: Sep 24, 2033
Patent 11648347 | Expires: Apr 6, 2034